FAERS Safety Report 19532303 (Version 3)
Quarter: 2021Q3

REPORT INFORMATION
  Report Type: Spontaneous
  Country: FR (occurrence: FR)
  Receive Date: 20210713
  Receipt Date: 20210924
  Transmission Date: 20211014
  Serious: Yes (Hospitalization, Other)
  Sender: FDA-Public Use
  Company Number: NVSC2021FR150088

PATIENT
  Age: 6 Month
  Sex: Female
  Weight: 8.9 kg

DRUGS (5)
  1. HEXYON [Concomitant]
     Active Substance: DIPHTHERIA AND TETANUS TOXOIDS AND ACELLULAR PERTUSSIS ADSORBED, INACTIVATED POLIOVIRUS AND HAEMOPHILUS B CONJUGATE AND HEPATITIS B VIRUS VACCINE
     Indication: PROPHYLAXIS
     Dosage: 2 UNK
     Route: 065
     Dates: start: 20210415
  2. CALCIDOSE [Concomitant]
     Indication: PRODUCT USED FOR UNKNOWN INDICATION
     Dosage: 500 MG, DAILY (SACHET)
     Route: 048
     Dates: start: 20210531
  3. PREVNAR 13 [Concomitant]
     Active Substance: PNEUMOCOCCAL 13-VALENT CONJUGATE VACCINE
     Indication: PROPHYLAXIS
     Dosage: 2 UNK
     Route: 065
     Dates: start: 20210115
  4. VITAMIN D [Concomitant]
     Active Substance: VITAMIN D NOS
     Indication: PRODUCT USED FOR UNKNOWN INDICATION
     Dosage: 2 DRP, DAILY
     Route: 048
     Dates: start: 20210531
  5. ZOLGENSMA [Suspect]
     Active Substance: ONASEMNOGENE ABEPARVOVEC-XIOI
     Indication: SPINAL MUSCULAR ATROPHY
     Dosage: 9.9X10E14 VECTOR GENOMES
     Route: 042
     Dates: start: 20210601, end: 20210601

REACTIONS (14)
  - Thrombotic microangiopathy [Recovered/Resolved]
  - Blood pressure increased [Unknown]
  - Abdominal distension [Unknown]
  - Pyrexia [Unknown]
  - Eating disorder [Unknown]
  - Vomiting [Unknown]
  - Polyuria [Unknown]
  - Irritability [Unknown]
  - Ascites [Unknown]
  - Thrombocytopenia [Unknown]
  - Weight increased [Unknown]
  - Pericardial effusion [Unknown]
  - Oedema [Unknown]
  - Nausea [Unknown]

NARRATIVE: CASE EVENT DATE: 20210606
